FAERS Safety Report 8205550-8 (Version None)
Quarter: 2012Q1

REPORT INFORMATION
  Report Type: 
  Country: None (occurrence: None)
  Receive Date: 20120313
  Receipt Date: 20120228
  Transmission Date: 20120608
  Serious: Yes (Hospitalization, Other)
  Sender: FDA-Public Use
  Company Number: US-ELI_LILLY_AND_COMPANY-US201203000174

PATIENT
  Age: 46 Year
  Sex: Female

DRUGS (3)
  1. CYMBALTA [Suspect]
     Indication: FIBROMYALGIA
     Dosage: 60 MG, QD
  2. CYMBALTA [Suspect]
     Dosage: 30 MG, QD
  3. CYMBALTA [Suspect]
     Dosage: 30 MG, OTHER

REACTIONS (18)
  - TENDONITIS [None]
  - HYSTERECTOMY [None]
  - PRURITUS [None]
  - PHOTOSENSITIVITY REACTION [None]
  - PAIN [None]
  - DISTURBANCE IN ATTENTION [None]
  - CRYING [None]
  - DRUG WITHDRAWAL SYNDROME [None]
  - URTICARIA [None]
  - HEPATIC ENZYME INCREASED [None]
  - CHEST DISCOMFORT [None]
  - NAUSEA [None]
  - ANGER [None]
  - PARAESTHESIA [None]
  - COUGH [None]
  - DIARRHOEA [None]
  - MUSCULOSKELETAL STIFFNESS [None]
  - HYPERACUSIS [None]
